FAERS Safety Report 17399699 (Version 1)
Quarter: 2020Q1

REPORT INFORMATION
  Report Type: Spontaneous
  Country: DE (occurrence: DE)
  Receive Date: 20200211
  Receipt Date: 20200211
  Transmission Date: 20200409
  Serious: Yes (Other)
  Sender: FDA-Public Use
  Company Number: DE-TEVA-2020-DE-1184003

PATIENT
  Age: 1 Day
  Sex: Male
  Weight: 2.42 kg

DRUGS (7)
  1. PRAVASTATIN. [Concomitant]
     Active Substance: PRAVASTATIN
     Indication: CORONARY ARTERY DISEASE
     Dosage: 40 [MG/D ]
     Route: 064
  2. VAXIGRIPTETRA [Concomitant]
     Active Substance: INFLUENZA VIRUS VACCINE QUADRIVALENT TYPE A+B
     Indication: IMMUNISATION
     Route: 064
     Dates: start: 20181210, end: 20181210
  3. BISOPROLOL [Suspect]
     Active Substance: BISOPROLOL
     Indication: ISCHAEMIC CARDIOMYOPATHY
     Dosage: 5 (MG/D)/ 2.5 - 5.0 MG DAILY
     Route: 064
     Dates: start: 20180825, end: 20190518
  4. NEPRESOL [Concomitant]
     Indication: ISCHAEMIC CARDIOMYOPATHY
     Dosage: 100 [MG/D ]/ 50 - 100 MG DAILY
     Route: 064
     Dates: start: 20180825, end: 20190518
  5. FEMIBION [Concomitant]
     Indication: PROPHYLAXIS OF NEURAL TUBE DEFECT
     Route: 064
     Dates: start: 20180926, end: 20190518
  6. SIMVASTATIN. [Concomitant]
     Active Substance: SIMVASTATIN
     Indication: CORONARY ARTERY DISEASE
     Dosage: 20 [MG/D ]
     Route: 064
  7. ASPIRIN. [Concomitant]
     Active Substance: ASPIRIN
     Indication: ISCHAEMIC CARDIOMYOPATHY
     Dosage: 100 [MG/D ]
     Route: 064
     Dates: start: 20180825, end: 20190518

REACTIONS (1)
  - Small for dates baby [Recovered/Resolved]

NARRATIVE: CASE EVENT DATE: 20190518
